FAERS Safety Report 5493986-8 (Version None)
Quarter: 2007Q4

REPORT INFORMATION
  Report Type: 
  Country: None (occurrence: None)
  Receive Date: 20071023
  Receipt Date: 20071011
  Transmission Date: 20080405
  Serious: Yes (Other)
  Sender: FDA-Public Use
  Company Number: US-PFIZER INC-2007070054

PATIENT
  Sex: Female
  Weight: 59.9 kg

DRUGS (8)
  1. CHANTIX [Suspect]
     Indication: SMOKING CESSATION THERAPY
     Route: 048
     Dates: start: 20070101, end: 20070101
  2. PREDNISONE [Suspect]
     Indication: ASTHMA
  3. EFFEXOR [Concomitant]
  4. AMBIEN [Concomitant]
  5. WELLBUTRIN [Concomitant]
  6. MORPHINE [Concomitant]
  7. PROTONIX [Concomitant]
  8. LORAZEPAM [Concomitant]

REACTIONS (8)
  - ASTHMA [None]
  - BODY HEIGHT DECREASED [None]
  - CONTUSION [None]
  - DYSGEUSIA [None]
  - FATIGUE [None]
  - INSOMNIA [None]
  - PLATELET COUNT DECREASED [None]
  - SURGERY [None]
